FAERS Safety Report 23778918 (Version 2)
Quarter: 2024Q2

REPORT INFORMATION
  Report Type: Spontaneous
  Country: BG (occurrence: BG)
  Receive Date: 20240424
  Receipt Date: 20240430
  Transmission Date: 20240715
  Serious: Yes (Other)
  Sender: FDA-Public Use
  Company Number: BG-002147023-NVSC2024BG084765

PATIENT
  Age: 76 Year
  Sex: Male

DRUGS (3)
  1. VALSARTAN [Suspect]
     Active Substance: VALSARTAN
     Indication: Hypertension
     Dosage: 160 MG ONCE DAILY IN THE MORNING
     Route: 065
  2. BISOPROLOL [Suspect]
     Active Substance: BISOPROLOL\BISOPROLOL FUMARATE
     Indication: Hypertension
     Dosage: HALF A TABLET TWICE DAILY
     Route: 065
  3. HYDROCHLOROTHIAZIDE [Suspect]
     Active Substance: HYDROCHLOROTHIAZIDE
     Indication: Hypertension
     Dosage: 160 MG/12.5 MG ADMINISTRATED ONCE IN THE MORNING FOR THE PAST 10 YEARS
     Route: 065

REACTIONS (1)
  - Nodular melanoma [Unknown]
